FAERS Safety Report 10497493 (Version 1)
Quarter: 2014Q3

REPORT INFORMATION
  Report Type: Spontaneous
  Country: US (occurrence: None)
  Receive Date: 20140815
  Receipt Date: 20140815
  Transmission Date: 20150326
  Serious: Yes (Other)
  Sender: FDA-Public Use
  Company Number: ADR-2014-00676

PATIENT
  Age: 43 Year
  Sex: Male

DRUGS (2)
  1. BACLOFEN INTRATHECAL [Suspect]
     Active Substance: BACLOFEN
  2. HYDROMORPHONE INTRATHECAL [Suspect]
     Active Substance: HYDROMORPHONE

REACTIONS (2)
  - Amnesia [None]
  - Infusion site mass [None]
